FAERS Safety Report 6346572-1 (Version None)
Quarter: 2009Q3

REPORT INFORMATION
  Report Type: 
  Country: None (occurrence: None)
  Receive Date: 20090901
  Receipt Date: 20090219
  Transmission Date: 20100115
  Serious: Yes (Hospitalization)
  Sender: FDA-Public Use
  Company Number: 2009BI000400

PATIENT
  Age: 53 Year
  Sex: Female
  Weight: 61.2356 kg

DRUGS (2)
  1. TYSABRI [Suspect]
     Indication: MULTIPLE SCLEROSIS
     Dosage: 300 MG; QM; IV
     Route: 042
     Dates: start: 20080116, end: 20081201
  2. AVONEX [Concomitant]

REACTIONS (12)
  - CONSTIPATION [None]
  - DISORIENTATION [None]
  - DIZZINESS [None]
  - DRUG EFFECT DECREASED [None]
  - FEAR [None]
  - MULTIPLE SCLEROSIS RELAPSE [None]
  - MUSCLE SPASMS [None]
  - MUSCULOSKELETAL STIFFNESS [None]
  - PARANOIA [None]
  - PITUITARY CYST [None]
  - STRESS [None]
  - VERTIGO [None]
